FAERS Safety Report 9474629 (Version 2)
Quarter: 2013Q3

REPORT INFORMATION
  Report Type: Spontaneous
  Country: US (occurrence: US)
  Receive Date: 20130823
  Receipt Date: 20130823
  Transmission Date: 20140515
  Serious: Yes (Other)
  Sender: FDA-Public Use
  Company Number: US-PFIZER INC-2009267104

PATIENT
  Age: 66 Year
  Sex: Male
  Weight: 77.55 kg

DRUGS (9)
  1. SUTENT [Suspect]
     Indication: RENAL CELL CARCINOMA
     Dosage: 50 MG DAILY, FOR 28 DAYS EVERY 42 DAYS
     Route: 048
     Dates: start: 20090819
  2. SUTENT [Suspect]
     Dosage: 50 MG, 1X/DAY (FOR 28 DAYS AND 14 DAYS OF WASH OUT PHASE)
     Route: 048
     Dates: start: 200908
  3. ZOMETA [Concomitant]
  4. AMLODIPINE [Concomitant]
     Indication: HYPERTENSION
     Dosage: UNK
  5. LOSARTAN [Concomitant]
     Indication: HYPERTENSION
     Dosage: UNK
  6. FINASTERIDE [Concomitant]
     Dosage: UNK
  7. LEVOTHYROXINE [Concomitant]
     Dosage: UNK
  8. XGEVA [Concomitant]
     Dosage: UNK
  9. CALCIUM [Concomitant]
     Dosage: UNK

REACTIONS (7)
  - Blood pressure increased [Unknown]
  - Diarrhoea [Not Recovered/Not Resolved]
  - Frequent bowel movements [Not Recovered/Not Resolved]
  - Asthenia [Unknown]
  - Dysgeusia [Unknown]
  - Fatigue [Unknown]
  - Blister [Unknown]
